FAERS Safety Report 21355847 (Version 1)
Quarter: 2022Q3

REPORT INFORMATION
  Report Type: Spontaneous
  Country: JP (occurrence: JP)
  Receive Date: 20220920
  Receipt Date: 20220920
  Transmission Date: 20221027
  Serious: Yes (Disabling)
  Sender: FDA-Public Use
  Company Number: JP-GUERBET-JP-20220119

PATIENT
  Sex: Male

DRUGS (1)
  1. GADOTERATE MEGLUMINE [Suspect]
     Active Substance: GADOTERATE MEGLUMINE
     Indication: Magnetic resonance imaging
     Route: 042
     Dates: start: 20220124, end: 20220124

REACTIONS (1)
  - Morphoea [Unknown]

NARRATIVE: CASE EVENT DATE: 20220401
